FAERS Safety Report 6829479-2 (Version None)
Quarter: 2010Q3

REPORT INFORMATION
  Report Type: 
  Country: None (occurrence: None)
  Receive Date: 20100709
  Receipt Date: 20070312
  Transmission Date: 20110219
  Serious: No
  Sender: FDA-Public Use
  Company Number: US-PFIZER INC-2007019978

PATIENT
  Sex: Female
  Weight: 79.38 kg

DRUGS (4)
  1. CHANTIX [Suspect]
     Indication: SMOKING CESSATION THERAPY
     Dates: start: 20070301
  2. ATENOLOL [Concomitant]
     Indication: HYPERTENSION
  3. ZETIA [Concomitant]
     Indication: BLOOD CHOLESTEROL INCREASED
  4. IMURAN [Concomitant]
     Indication: AUTOIMMUNE HEPATITIS

REACTIONS (3)
  - DYSPEPSIA [None]
  - FATIGUE [None]
  - FLATULENCE [None]
